FAERS Safety Report 8900159 (Version 2)
Quarter: 2012Q4

REPORT INFORMATION
  Report Type: 
  Country: TW (occurrence: TW)
  Receive Date: 20121109
  Receipt Date: 20121130
  Transmission Date: 20130627
  Serious: Yes (Life-Threatening, Hospitalization)
  Sender: FDA-Public Use
  Company Number: TW-BAYER-2012-111952

PATIENT
  Age: 54 Year
  Sex: Male
  Weight: 65 kg

DRUGS (1)
  1. GADOVIST [Suspect]
     Indication: NUCLEAR MAGNETIC RESONANCE IMAGING BRAIN
     Dosage: 5 ml, ONCE
     Route: 042
     Dates: start: 20121024, end: 20121024

REACTIONS (3)
  - Cardiac arrest [Unknown]
  - Pulse absent [Unknown]
  - Coma [Not Recovered/Not Resolved]
